FAERS Safety Report 21196036 (Version 2)
Quarter: 2022Q3

REPORT INFORMATION
  Report Type: Spontaneous
  Country: JP (occurrence: JP)
  Receive Date: 20220810
  Receipt Date: 20220812
  Transmission Date: 20221027
  Serious: Yes (Other)
  Sender: FDA-Public Use
  Company Number: JP-ONO-2022JP022208

PATIENT

DRUGS (1)
  1. OPDIVO [Suspect]
     Active Substance: NIVOLUMAB
     Indication: Gastric cancer
     Dosage: UNK
     Route: 042

REACTIONS (10)
  - Platelet count decreased [Unknown]
  - Hyperammonaemia [Unknown]
  - Pneumonia [Unknown]
  - Neutrophil count decreased [Unknown]
  - Enterocolitis [Unknown]
  - Large intestinal obstruction [Unknown]
  - Alanine aminotransferase increased [Unknown]
  - Adrenal insufficiency [Unknown]
  - Diarrhoea [Unknown]
  - Hypothyroidism [Unknown]
